FAERS Safety Report 7618063-9 (Version None)
Quarter: 2011Q3

REPORT INFORMATION
  Report Type: 
  Country: None (occurrence: None)
  Receive Date: 20110718
  Receipt Date: 20110706
  Transmission Date: 20111222
  Serious: Yes (Other)
  Sender: FDA-Public Use
  Company Number: JP-PFIZER INC-2011050260

PATIENT
  Age: 70 Year
  Sex: Female

DRUGS (13)
  1. CANDESARTAN CILEXETIL [Concomitant]
     Indication: HYPERTENSION
     Dosage: 8 MG/DAY
     Route: 048
  2. NIKORANMART [Concomitant]
     Indication: HYPERTENSION
     Dosage: 45 MG/DAY
     Route: 048
  3. COMELIAN [Concomitant]
     Indication: ANGINA PECTORIS
     Dosage: 900 MG/DAY
     Route: 048
  4. NITROGLYCERIN [Concomitant]
     Indication: ANGINA PECTORIS
     Dosage: 27 MG/DAY
  5. SYMMETREL [Concomitant]
     Indication: PARKINSONISM
     Dosage: 200 MG/DAY
     Dates: end: 20080327
  6. SYMMETREL [Concomitant]
     Dosage: 50 MG/DAY
     Route: 048
     Dates: start: 20080327, end: 20080424
  7. TOWAZUREN [Concomitant]
     Indication: GASTRITIS PROPHYLAXIS
     Dosage: 4.5 G/DAY
     Route: 048
  8. LASIX [Concomitant]
     Indication: HYPERTENSION
     Dosage: 20 MG/DAY
     Route: 048
  9. AMLODIPINE [Suspect]
     Indication: HYPERTENSION
     Dosage: 5 MG, UNK
     Route: 048
     Dates: end: 20071004
  10. TIEKAPTO [Concomitant]
     Indication: GASTRITIS PROPHYLAXIS
     Dosage: 200 MG/DAY
     Route: 048
  11. CONCZYME N [Concomitant]
     Indication: GASTRITIS PROPHYLAXIS
     Dosage: 9 G/DAY
     Route: 048
  12. SELBEX [Concomitant]
     Indication: GASTRITIS PROPHYLAXIS
     Dosage: 450 MG/DAY
     Route: 048
  13. RIKKUNSHI-TO [Concomitant]
     Indication: GASTRITIS PROPHYLAXIS
     Dosage: 22.5 G/DAY
     Route: 048
     Dates: end: 20070614

REACTIONS (1)
  - PARKINSONISM [None]
